FAERS Safety Report 4269310-5 (Version None)
Quarter: 2004Q1

REPORT INFORMATION
  Report Type: 
  Country: None (occurrence: None)
  Receive Date: 20040109
  Receipt Date: 20030804
  Transmission Date: 20041129
  Serious: Yes (Hospitalization, Other)
  Sender: FDA-Public Use
  Company Number: M2004.6711

PATIENT
  Age: 71 Year
  Sex: Female

DRUGS (17)
  1. ATENOLOL [Suspect]
     Dosage: 50 MG AM (DECREASED TO 25MG THEN STOPPED)
     Dates: start: 20030301, end: 20030618
  2. ASPIRIN [Concomitant]
  3. NITRAZEPAM [Concomitant]
  4. GABAPENTIN [Concomitant]
  5. LANSOPRAZOLE [Concomitant]
  6. ALENDRONATE SODIUM [Concomitant]
  7. SENNA [Concomitant]
  8. CO-CODAMOL (PARACETAMOL/CODEINE) [Concomitant]
  9. LACTULOSE [Concomitant]
  10. VITAMIN B COMPLEX (THIAMINE/NICOTINAMIDE/RIBOFLAVINE) [Concomitant]
  11. RANITIDINE [Concomitant]
  12. FOLIC ACID [Concomitant]
  13. VISCOTEARS [Concomitant]
  14. SIMVASTATIN [Concomitant]
  15. CO-TRIMOXAZOLE (SULPHAMETHOXAZOLE/TRIMETHOPRIM) [Suspect]
     Indication: INFECTION
     Dosage: 960MG
     Dates: start: 20030301, end: 20030619
  16. ROFECOXIB [Suspect]
     Dosage: 25 MG AM
     Dates: start: 20030301, end: 20030601
  17. TRIMETHOPRIM [Suspect]
     Dosage: 200MG
     Dates: start: 20030308, end: 20030318

REACTIONS (5)
  - CIRCULATORY COLLAPSE [None]
  - FEELING ABNORMAL [None]
  - HEART RATE DECREASED [None]
  - HYPERKALAEMIA [None]
  - HYPOTENSION [None]
